FAERS Safety Report 21964624 (Version 1)
Quarter: 2023Q1

REPORT INFORMATION
  Report Type: Spontaneous
  Country: US (occurrence: US)
  Receive Date: 20230207
  Receipt Date: 20230207
  Transmission Date: 20230417
  Serious: No
  Sender: FDA-Public Use
  Company Number: US-PURDUE PHARMA-USA-2022-0296303

PATIENT
  Sex: Male

DRUGS (1)
  1. BUPRENORPHINE [Suspect]
     Active Substance: BUPRENORPHINE
     Indication: Product used for unknown indication
     Dosage: 20 MCG/HR
     Route: 062

REACTIONS (6)
  - Dermatitis contact [Unknown]
  - Application site burn [Unknown]
  - Application site rash [Unknown]
  - Application site pruritus [Unknown]
  - Product adhesion issue [Unknown]
  - Hyperhidrosis [Unknown]
